FAERS Safety Report 14901376 (Version 2)
Quarter: 2018Q2

REPORT INFORMATION
  Report Type: Report from Study
  Country: None (occurrence: US)
  Receive Date: 20180516
  Receipt Date: 20180614
  Transmission Date: 20180711
  Serious: Yes (Hospitalization)
  Sender: FDA-Public Use
  Company Number: US-ABBVIE-18K-163-2356278-00

PATIENT
  Age: 23 Year
  Sex: Female

DRUGS (2)
  1. TRAMADOL. [Suspect]
     Active Substance: TRAMADOL
     Indication: PRODUCT USED FOR UNKNOWN INDICATION
     Route: 065
  2. HUMIRA [Suspect]
     Active Substance: ADALIMUMAB
     Indication: HIDRADENITIS
     Route: 058
     Dates: start: 201804

REACTIONS (5)
  - Incorrect dose administered [Unknown]
  - Suicide attempt [Recovered/Resolved]
  - Anxiety [Recovering/Resolving]
  - Vomiting [Unknown]
  - Bipolar I disorder [Recovering/Resolving]

NARRATIVE: CASE EVENT DATE: 201805
